FAERS Safety Report 6082173-0 (Version None)
Quarter: 2009Q1

REPORT INFORMATION
  Report Type: 
  Country: None (occurrence: None)
  Receive Date: 20090218
  Receipt Date: 20090213
  Transmission Date: 20090719
  Serious: Yes (Hospitalization)
  Sender: FDA-Public Use
  Company Number: A0766437A

PATIENT
  Age: 53 Year
  Sex: Male
  Weight: 90.9 kg

DRUGS (1)
  1. AVANDIA [Suspect]
     Dosage: 4MG TWICE PER DAY
     Route: 048
     Dates: start: 20061101, end: 20061201

REACTIONS (3)
  - CARDIOVASCULAR DISORDER [None]
  - HEART INJURY [None]
  - MYOCARDIAL INFARCTION [None]
